FAERS Safety Report 8887455 (Version 1)
Quarter: 2012Q4

REPORT INFORMATION
  Report Type: 
  Country: US (occurrence: US)
  Receive Date: 20121105
  Receipt Date: 20121105
  Transmission Date: 20130627
  Serious: No
  Sender: FDA-Public Use
  Company Number: US-PFIZER INC-2012272299

PATIENT
  Age: 67 Year
  Sex: Female

DRUGS (11)
  1. SOMAVERT [Suspect]
     Indication: BENIGN NEOPLASM
     Dosage: 10 mg, 1x/day
     Route: 058
  2. SOMAVERT [Suspect]
     Indication: ACROMEGALY
  3. SOMAVERT [Suspect]
     Indication: GIGANTISM
  4. SOMAVERT [Suspect]
     Indication: RICKETS
  5. TORSEMIDE [Concomitant]
     Dosage: UNK
  6. COUMADINE [Concomitant]
     Dosage: UNK
  7. AVAPRO [Concomitant]
     Dosage: UNK
  8. DESMOPRESSIN [Concomitant]
     Dosage: UNK
  9. HYDROCORTISONE [Concomitant]
     Dosage: UNK
  10. LEVOTHYROXINE [Concomitant]
     Dosage: UNK
  11. PROPAFENONE [Concomitant]
     Dosage: UNK

REACTIONS (4)
  - Off label use [Unknown]
  - Nausea [Unknown]
  - Asthenia [Unknown]
  - Dyspnoea [Unknown]
